FAERS Safety Report 14441597 (Version 3)
Quarter: 2018Q1

REPORT INFORMATION
  Report Type: Spontaneous
  Country: US (occurrence: US)
  Receive Date: 20180125
  Receipt Date: 20180309
  Transmission Date: 20180509
  Serious: No
  Sender: FDA-Public Use
  Company Number: US-GLAXOSMITHKLINE-US2018009142

PATIENT
  Sex: Female
  Weight: 73 kg

DRUGS (3)
  1. FLONASE ALLERGY RELIEF [Suspect]
     Active Substance: FLUTICASONE PROPIONATE
     Indication: RHINITIS
     Dosage: UNK
     Dates: start: 20171221
  2. FLUTICASONE PROPIONATE. [Suspect]
     Active Substance: FLUTICASONE PROPIONATE
     Indication: RHINITIS
     Dosage: UNK
     Dates: start: 20171221, end: 20171222
  3. CLARITIN [Suspect]
     Active Substance: LORATADINE
     Indication: RHINITIS
     Dosage: UNK

REACTIONS (2)
  - Anosmia [Recovered/Resolved]
  - Off label use [Unknown]
